FAERS Safety Report 20437147 (Version 4)
Quarter: 2022Q4

REPORT INFORMATION
  Report Type: Spontaneous
  Country: JP (occurrence: JP)
  Receive Date: 20220207
  Receipt Date: 20221206
  Transmission Date: 20230113
  Serious: No
  Sender: FDA-Public Use
  Company Number: JP-GLAXOSMITHKLINE-JP2022JPN018348

PATIENT

DRUGS (10)
  1. SOTROVIMAB [Suspect]
     Active Substance: SOTROVIMAB
     Indication: COVID-19
     Dosage: 500 MG PER DAY
     Route: 042
     Dates: start: 20220129, end: 20220129
  2. COMIRNATY [Suspect]
     Active Substance: TOZINAMERAN
     Indication: COVID-19 prophylaxis
     Dosage: 0.3 ML
     Route: 030
  3. COMIRNATY [Suspect]
     Active Substance: TOZINAMERAN
     Indication: COVID-19 prophylaxis
     Dosage: 0.3 ML
     Route: 030
     Dates: start: 202107
  4. CEFMETAZOLE [Suspect]
     Active Substance: CEFMETAZOLE
     Indication: Cervix cerclage procedure
     Dosage: 1 G PER DAY
     Route: 042
     Dates: start: 20211015, end: 20211016
  5. ACETAMINOPHEN [Suspect]
     Active Substance: ACETAMINOPHEN
     Indication: Cervical incompetence
     Dosage: 2000 MG PER DAY
     Route: 042
     Dates: start: 20211015, end: 20211015
  6. PANTHENOL [Suspect]
     Active Substance: PANTHENOL
     Indication: Cervical incompetence
     Dosage: 100 MG PER DAY
     Route: 042
     Dates: start: 20211016, end: 20211016
  7. CARBAZOCHROME SODIUM SULFONATE [Suspect]
     Active Substance: CARBAZOCHROME SODIUM SULFONATE
     Indication: Haemorrhage
     Dosage: 90 MG PER DAY
     Route: 048
     Dates: start: 20210929, end: 20211012
  8. TRANSAMIN [Suspect]
     Active Substance: TRANEXAMIC ACID
     Indication: Haemorrhage
     Dosage: 750 MG PER DAY
     Route: 048
     Dates: start: 20210929, end: 20211012
  9. CHLORAMPHENICOL [Suspect]
     Active Substance: CHLORAMPHENICOL
     Indication: Cervix cerclage procedure
     Dosage: 100 MG PER DAY
     Route: 067
     Dates: start: 20211015, end: 20211017
  10. FLAGYL [Suspect]
     Active Substance: METRONIDAZOLE\METRONIDAZOLE HYDROCHLORIDE
     Indication: Cervix cerclage procedure
     Dosage: 250 MG PER DAY
     Route: 067
     Dates: start: 20211015, end: 20211017

REACTIONS (2)
  - Exposure during pregnancy [Unknown]
  - Live birth [Unknown]
